FAERS Safety Report 6146497-0 (Version None)
Quarter: 2009Q2

REPORT INFORMATION
  Report Type: 
  Country: None (occurrence: None)
  Receive Date: 20090407
  Receipt Date: 20090401
  Transmission Date: 20091009
  Serious: Yes (Life-Threatening)
  Sender: FDA-Public Use
  Company Number: B0568770A

PATIENT
  Sex: Female

DRUGS (1)
  1. RANIDIL [Suspect]
     Dosage: 100MG PER DAY
     Route: 065
     Dates: start: 20090326, end: 20090326

REACTIONS (7)
  - CARDIAC FAILURE [None]
  - ERYTHEMA [None]
  - FACE OEDEMA [None]
  - HYPERHIDROSIS [None]
  - LOCALISED OEDEMA [None]
  - LOSS OF CONSCIOUSNESS [None]
  - VOMITING [None]
